FAERS Safety Report 8852298 (Version 2)
Quarter: 2012Q4

REPORT INFORMATION
  Report Type: Spontaneous
  Country: SE (occurrence: None)
  Receive Date: 20121017
  Receipt Date: 20121210
  Transmission Date: 20130627
  Serious: Yes (Death, Hospitalization)
  Sender: FDA-Public Use
  Company Number: MC201200631

PATIENT
  Age: 79 Year
  Sex: Female

DRUGS (17)
  1. ANGIOMAX [Suspect]
     Indication: PERCUTANEOUS CORONARY INTERVENTION
     Route: 042
     Dates: start: 20120718
  2. ANGIOMAX [Suspect]
     Indication: PERCUTANEOUS CORONARY INTERVENTION
     Dosage: 250 mg, (5mg/ml) infusion, Intravenous
     Route: 042
     Dates: start: 20120718
  3. CLOPIDOGREL SULFATE [Suspect]
     Dates: start: 20120719, end: 20120901
  4. BRILIQUE [Suspect]
     Dosage: 90 mg, film-coated tablet
     Dates: start: 20120718
  5. WARAN [Suspect]
     Indication: ATRIAL FIBRILLATION
     Dates: start: 20100603
  6. INNOHEP [Suspect]
     Dosage: 10000 IE/ml routine treatment
  7. TROMBYL [Suspect]
     Dates: start: 20120718
  8. SIMVASTATIN [Concomitant]
  9. NEXIUM (ESOMEPRAZOLE MAGNESIUM) [Concomitant]
  10. ENALAPRIL (ENALAPRIL MALEATE) [Concomitant]
  11. CEFOTAXIME (CEFOTAXIME SODIUM) [Concomitant]
  12. SELOKEN (METOPROLOL TARTRATE) [Concomitant]
  13. ALVEDON (PARACETAMOL) [Concomitant]
  14. KAJOS (POTASSIUM CITRATE) [Suspect]
  15. DIGOXIN (DIGOXIN) [Suspect]
  16. FURIX (FUROSEMIDE) [Suspect]
  17. GLYTRIN (GLYCERYL TRINITRATE) [Suspect]

REACTIONS (13)
  - Pulmonary alveolar haemorrhage [None]
  - Cardiac failure [None]
  - Respiratory failure [None]
  - Oxygen consumption increased [None]
  - Hypoventilation [None]
  - Pulmonary hypertension [None]
  - Tricuspid valve incompetence [None]
  - Cardiovascular insufficiency [None]
  - Acute respiratory distress syndrome [None]
  - Anuria [None]
  - Endocarditis [None]
  - Septic embolus [None]
  - Dialysis [None]
